APPROVED DRUG PRODUCT: NAPROXEN SODIUM AND DIPHENHYDRAMINE HYDROCHLORIDE
Active Ingredient: DIPHENHYDRAMINE HYDROCHLORIDE; NAPROXEN SODIUM
Strength: 25MG;220MG
Dosage Form/Route: TABLET;ORAL
Application: A209726 | Product #001
Applicant: AMNEAL PHARMACEUTICALS CO GMBH
Approved: Oct 23, 2018 | RLD: No | RS: No | Type: OTC